FAERS Safety Report 9281307 (Version 2)
Quarter: 2013Q2

REPORT INFORMATION
  Report Type: Report from Study
  Country: CA (occurrence: CA)
  Receive Date: 20130509
  Receipt Date: 20130614
  Transmission Date: 20140414
  Serious: Yes (Hospitalization)
  Sender: FDA-Public Use
  Company Number: CA-PFIZER INC-2013134170

PATIENT
  Age: 57 Year
  Sex: Male

DRUGS (7)
  1. SERTRALINE HCL [Suspect]
     Indication: MAJOR DEPRESSION
     Dosage: 200 MG, DAILY
     Route: 048
     Dates: start: 20121113, end: 20130425
  2. OLANZAPINE [Suspect]
     Indication: MAJOR DEPRESSION
     Dosage: 20 MG, DAILY
     Route: 048
     Dates: start: 20121112, end: 2013
  3. BLINDED THERAPY [Suspect]
     Indication: MAJOR DEPRESSION
     Dosage: UNK
     Route: 048
     Dates: start: 20130402, end: 20130425
  4. LORAZEPAM [Concomitant]
     Indication: INSOMNIA
     Dosage: 2 MG, UNK
     Route: 048
     Dates: start: 20130121
  5. ACETAMINOPHEN [Concomitant]
     Dosage: UNK
     Dates: end: 20130423
  6. IBUPROFEN [Concomitant]
     Dosage: UNK
     Dates: end: 20130423
  7. METHOCARBAMOL [Concomitant]
     Dosage: UNK
     Dates: end: 20130423

REACTIONS (1)
  - Suicide attempt [Recovered/Resolved]
